FAERS Safety Report 10240582 (Version 1)
Quarter: 2014Q2

REPORT INFORMATION
  Report Type: Spontaneous
  Country: US (occurrence: None)
  Receive Date: 20140613
  Receipt Date: 20140613
  Transmission Date: 20141212
  Serious: Yes (Other)
  Sender: FDA-Public Use
  Company Number: None

PATIENT
  Age: 61 Year
  Sex: Female
  Weight: 45.36 kg

DRUGS (19)
  1. ATIVAN [Suspect]
     Indication: ANXIETY
     Dosage: 1 MG  90 1 TABS; TID BY MOUTH
     Route: 048
     Dates: start: 20140508, end: 20140512
  2. ATIVAN [Suspect]
     Indication: POST-TRAUMATIC STRESS DISORDER
     Dosage: 1 MG  90 1 TABS; TID BY MOUTH
     Route: 048
     Dates: start: 20140508, end: 20140512
  3. ATIVAN [Suspect]
     Indication: PANIC REACTION
     Dosage: 1 MG  90 1 TABS; TID BY MOUTH
     Route: 048
     Dates: start: 20140508, end: 20140512
  4. METHOTREXATE [Concomitant]
  5. METHYLPREDNISOLONE [Concomitant]
  6. OXYCONTIN [Concomitant]
  7. VICODIN [Concomitant]
  8. NEURONTIN [Concomitant]
  9. REGLAN [Concomitant]
  10. NEXIUM [Concomitant]
  11. PLAQUINAL [Concomitant]
  12. FOLIC ACID [Concomitant]
  13. PREVASTATIN [Concomitant]
  14. ZOPHRAN [Concomitant]
  15. LIBRAX [Concomitant]
  16. SOMA [Concomitant]
  17. CANE [Concomitant]
  18. WALKER SEAT [Concomitant]
  19. MIRALAX [Concomitant]

REACTIONS (30)
  - Palpitations [None]
  - Tachyphrenia [None]
  - Tremor [None]
  - Muscle tightness [None]
  - Vision blurred [None]
  - Insomnia [None]
  - Fear [None]
  - Crying [None]
  - Viral infection [None]
  - Undifferentiated connective tissue disease [None]
  - Mass [None]
  - Cardiac failure congestive [None]
  - Osteoporosis [None]
  - Lyme disease [None]
  - Staphylococcal infection [None]
  - Panic reaction [None]
  - Dysthymic disorder [None]
  - Ulcer [None]
  - Agitation [None]
  - Unevaluable event [None]
  - Pain [None]
  - Hyperlipidaemia [None]
  - Blood potassium decreased [None]
  - Spinal fracture [None]
  - Cyst [None]
  - Intervertebral disc degeneration [None]
  - Vertebral foraminal stenosis [None]
  - Intervertebral disc protrusion [None]
  - Pulmonary mass [None]
  - Hepatic lesion [None]
